FAERS Safety Report 17082972 (Version 1)
Quarter: 2019Q4

REPORT INFORMATION
  Report Type: Spontaneous
  Country: US (occurrence: US)
  Receive Date: 20191127
  Receipt Date: 20191127
  Transmission Date: 20200122
  Serious: Yes (Life-Threatening, Hospitalization, Other)
  Sender: FDA-Public Use
  Company Number: US-AMGEN-USASP2019195097

PATIENT

DRUGS (7)
  1. FILGRASTIM [Suspect]
     Active Substance: FILGRASTIM
     Dosage: 480 MICROGRAM, AFTER CHEMO ON DAYS 3-10, AFTER CHEMO ON DAYS 3-10, AFTER CHEMO
     Route: 058
  2. CYCLOPHOSPHAMIDE. [Suspect]
     Active Substance: CYCLOPHOSPHAMIDE
     Indication: BREAST CANCER
     Dosage: 3 GRAM PER SQUARE METRE, ON DAYS 85, 99 AND 113, WITH 24 H OF HYPERHYDRATION
     Route: 042
  3. TAMOXIFEN [Concomitant]
     Active Substance: TAMOXIFEN
     Indication: BREAST CANCER
     Dosage: UNK
  4. DEXAMETHASONE. [Concomitant]
     Active Substance: DEXAMETHASONE
     Indication: PREMEDICATION
     Dosage: 20 MILLIGRAM WAS GIVEN 14 AND 7 H PRIOR TO TREATMENT
  5. DOXORUBICIN [Suspect]
     Active Substance: DOXORUBICIN
     Indication: BREAST CANCER
     Dosage: 90 MILLIGRAM/SQ. METER, ON DAYS 1, 15 AND 29
     Route: 042
  6. PACLITAXEL. [Suspect]
     Active Substance: PACLITAXEL
     Indication: BREAST CANCER
     Dosage: 250 MILLIGRAM/SQ. METER, CONTINUOUS INFUSION OVER 24 H ON DAYS 43, 57, AND 71
     Route: 041
  7. FILGRASTIM [Suspect]
     Active Substance: FILGRASTIM
     Indication: PRODUCT USED FOR UNKNOWN INDICATION
     Dosage: 300 MICROGRAM, ON DAYS 3-10, AFTER CHEMO
     Route: 058

REACTIONS (22)
  - Acute myeloid leukaemia [Unknown]
  - Multiple sclerosis relapse [Unknown]
  - Arthralgia [Unknown]
  - Vomiting [Unknown]
  - Febrile neutropenia [Unknown]
  - Palmar-plantar erythrodysaesthesia syndrome [Unknown]
  - Mucosal inflammation [Unknown]
  - Nausea [Unknown]
  - Respiratory tract infection [Unknown]
  - Neuropathy peripheral [Unknown]
  - Cystitis viral [Unknown]
  - Myalgia [Unknown]
  - Skin infection [Unknown]
  - Hyponatraemia [Unknown]
  - Cardiac failure congestive [Unknown]
  - Urinary tract infection [Unknown]
  - Neutropenia [Unknown]
  - Breast cancer recurrent [Unknown]
  - Vertebral lesion [Unknown]
  - Stomatitis [Unknown]
  - Second primary malignancy [Unknown]
  - Headache [Unknown]
